FAERS Safety Report 9823989 (Version 2)
Quarter: 2014Q1

REPORT INFORMATION
  Report Type: Spontaneous
  Country: US (occurrence: US)
  Receive Date: 20140116
  Receipt Date: 20140116
  Transmission Date: 20141002
  Serious: No
  Sender: FDA-Public Use
  Company Number: US-GILEAD-2011-0037757

PATIENT
  Age: 58 Year
  Sex: Female

DRUGS (4)
  1. LETAIRIS [Suspect]
     Indication: PULMONARY HYPERTENSION
     Route: 048
     Dates: start: 20110120
  2. TYVASO [Concomitant]
  3. VENTAVIS [Concomitant]
  4. REVATIO [Concomitant]

REACTIONS (1)
  - Drug ineffective [Not Recovered/Not Resolved]
